FAERS Safety Report 9269295 (Version 2)
Quarter: 2013Q3

REPORT INFORMATION
  Report Type: Spontaneous
  Country: US (occurrence: US)
  Receive Date: 20130503
  Receipt Date: 20130715
  Transmission Date: 20140515
  Serious: No
  Sender: FDA-Public Use
  Company Number: US-PFIZER INC-2013136524

PATIENT
  Age: 46 Year
  Sex: Female
  Weight: 88.44 kg

DRUGS (1)
  1. ELELYSO [Suspect]
     Indication: GAUCHER^S DISEASE
     Dosage: 2800 UNITS EVERY 2 WEEKS
     Route: 042
     Dates: start: 20120724

REACTIONS (1)
  - Drug ineffective [Unknown]
